FAERS Safety Report 8140103-1 (Version None)
Quarter: 2012Q1

REPORT INFORMATION
  Report Type: 
  Country: None (occurrence: None)
  Receive Date: 20120216
  Receipt Date: 20120206
  Transmission Date: 20120608
  Serious: Yes (Hospitalization, Other)
  Sender: FDA-Public Use
  Company Number: BR-AMGEN-BRASP2012008746

PATIENT
  Age: 59 Year
  Sex: Female
  Weight: 64 kg

DRUGS (7)
  1. ENBREL [Suspect]
     Indication: RHEUMATOID ARTHRITIS
     Dosage: POWDER AND SOLVENT FOR SOLUTION FOR INJECTION
     Dates: start: 20091218, end: 20111101
  2. CAPTOPRIL [Concomitant]
     Indication: RENAL DISORDER
     Dosage: 25 MG, TWICE, UNK
  3. PREDNISONE TAB [Concomitant]
     Dosage: UNK
  4. ENBREL [Suspect]
     Dosage: 50 MG, ONCE WEEKLY
     Route: 058
     Dates: start: 20111201
  5. INSULIN [Concomitant]
     Dosage: TWICE DAILY
  6. METFORMIN HCL [Concomitant]
     Dosage: UNK
  7. ENBREL [Suspect]
     Dosage: PFS
     Dates: start: 20120206

REACTIONS (2)
  - FEMUR FRACTURE [None]
  - FALL [None]
